FAERS Safety Report 4885163-6 (Version None)
Quarter: 2006Q1

REPORT INFORMATION
  Report Type: 
  Country: None (occurrence: None)
  Receive Date: 20060119
  Receipt Date: 20051205
  Transmission Date: 20060701
  Serious: Yes (Other)
  Sender: FDA-Public Use
  Company Number: US-AMGEN-US160595

PATIENT
  Sex: Male
  Weight: 57.7 kg

DRUGS (4)
  1. PROCRIT [Suspect]
     Indication: ANAEMIA OF MALIGNANT DISEASE
     Route: 058
     Dates: start: 20051110, end: 20051202
  2. BACTRIM DS [Suspect]
     Route: 048
     Dates: start: 20051001
  3. PREDNISONE [Concomitant]
     Dates: start: 20051001
  4. ALLOPURINOL [Concomitant]
     Dates: start: 20051003, end: 20051010

REACTIONS (2)
  - APLASIA PURE RED CELL [None]
  - PANCYTOPENIA [None]
